FAERS Safety Report 4567019-1 (Version None)
Quarter: 2005Q1

REPORT INFORMATION
  Report Type: 
  Country: None (occurrence: None)
  Receive Date: 20050201
  Receipt Date: 20040624
  Transmission Date: 20050727
  Serious: No
  Sender: FDA-Public Use
  Company Number: US-BRISTOL-MYERS SQUIBB COMPANY-12624417

PATIENT
  Sex: Male

DRUGS (4)
  1. STADOL [Suspect]
     Indication: MIGRAINE
     Route: 045
  2. CODEINE SUL TAB [Concomitant]
  3. INDERAL [Concomitant]
  4. MIGRANAL [Concomitant]
     Route: 045

REACTIONS (1)
  - BLOOD GLUCOSE INCREASED [None]
